FAERS Safety Report 19186438 (Version 1)
Quarter: 2021Q2

REPORT INFORMATION
  Report Type: Spontaneous
  Country: US (occurrence: US)
  Receive Date: 20210427
  Receipt Date: 20210427
  Transmission Date: 20210717
  Serious: No
  Sender: FDA-Public Use
  Company Number: US-JNJFOC-20210435423

PATIENT
  Sex: Male
  Weight: 111.23 kg

DRUGS (1)
  1. MENS ROGAINE EXTRA STRENGTH [Suspect]
     Active Substance: MINOXIDIL
     Indication: ALOPECIA
     Dosage: 2 INCHED IN DIAMETER TWICE A DAILY?PRODUCT STOP DATE:2 OR 3 MONTHS AGO
     Route: 061
     Dates: start: 202010, end: 2021

REACTIONS (1)
  - Incorrect dose administered [Unknown]

NARRATIVE: CASE EVENT DATE: 202010
